FAERS Safety Report 12999385 (Version 3)
Quarter: 2017Q1

REPORT INFORMATION
  Report Type: Spontaneous
  Country: US (occurrence: US)
  Receive Date: 20161205
  Receipt Date: 20170113
  Transmission Date: 20170428
  Serious: Yes (Hospitalization, Other)
  Sender: FDA-Public Use
  Company Number: US-SAOL THERAPEUTICS-2016SAO01175

PATIENT
  Age: 20 Year
  Sex: Male

DRUGS (2)
  1. BACLOFEN. [Suspect]
     Active Substance: BACLOFEN
     Indication: MUSCLE SPASTICITY
  2. BACLOFEN. [Suspect]
     Active Substance: BACLOFEN
     Indication: CEREBRAL PALSY
     Route: 037

REACTIONS (10)
  - Meningitis bacterial [Unknown]
  - Dysphagia [Unknown]
  - Impaired healing [Unknown]
  - Fungal infection [Unknown]
  - Respiratory disorder [Unknown]
  - Withdrawal syndrome [Unknown]
  - Cerebrospinal fluid leakage [Unknown]
  - Complication associated with device [Unknown]
  - Pain [Unknown]
  - Emotional distress [Unknown]

NARRATIVE: CASE EVENT DATE: 2016
